FAERS Safety Report 22231517 (Version 1)
Quarter: 2023Q2

REPORT INFORMATION
  Report Type: Spontaneous
  Country: US (occurrence: US)
  Receive Date: 20230420
  Receipt Date: 20230420
  Transmission Date: 20230721
  Serious: No
  Sender: FDA-Public Use
  Company Number: US-ELI_LILLY_AND_COMPANY-US202304009321

PATIENT
  Age: 69 Year
  Sex: Male

DRUGS (1)
  1. EMGALITY [Suspect]
     Active Substance: GALCANEZUMAB-GNLM
     Indication: Product used for unknown indication
     Dosage: 120 MG, UNKNOWN
     Route: 065

REACTIONS (8)
  - Dizziness [Unknown]
  - Neuropathy peripheral [Unknown]
  - Insomnia [Unknown]
  - Hyperhidrosis [Unknown]
  - Brain fog [Unknown]
  - Hypertension [Unknown]
  - Depression [Unknown]
  - Palpitations [Unknown]
